FAERS Safety Report 25779242 (Version 4)
Quarter: 2025Q4

REPORT INFORMATION
  Report Type: Spontaneous
  Country: EU (occurrence: EU)
  Receive Date: 20250909
  Receipt Date: 20251230
  Transmission Date: 20260118
  Serious: Yes (Life-Threatening)
  Sender: ALEXION PHARMACEUTICALS
  Company Number: None

PATIENT
  Age: 14 Year
  Sex: Male
  Weight: 55 kg

DRUGS (3)
  1. TEZSPIRE [Suspect]
     Active Substance: TEZEPELUMAB-EKKO
     Dosage: UNK
     Dates: start: 20240115, end: 20250814
  2. TEZSPIRE [Suspect]
     Active Substance: TEZEPELUMAB-EKKO
  3. Orylmyte [Concomitant]
     Indication: Rhinitis allergic
     Dosage: UNK
     Route: 061

REACTIONS (4)
  - Product administration interrupted [Recovered/Resolved]
  - Injection site haemorrhage [Recovered/Resolved]
  - Asthmatic crisis [Recovering/Resolving]
  - Underdose [Recovered/Resolved]

NARRATIVE: CASE EVENT DATE: 20250808
